FAERS Safety Report 15673107 (Version 2)
Quarter: 2018Q4

REPORT INFORMATION
  Report Type: Spontaneous
  Country: US (occurrence: US)
  Receive Date: 20181129
  Receipt Date: 20181225
  Transmission Date: 20190205
  Serious: Yes (Hospitalization)
  Sender: FDA-Public Use
  Company Number: US-ASTRAZENECA-2018SF56107

PATIENT
  Sex: Female
  Weight: 61.2 kg

DRUGS (1)
  1. PULMICORT FLEXHALER [Suspect]
     Active Substance: BUDESONIDE
     Indication: ASTHMA
     Dosage: 180MCG 1 PUFF TWICE A DAY
     Route: 055

REACTIONS (2)
  - Malaise [Unknown]
  - Device issue [Unknown]
